FAERS Safety Report 9202443 (Version 1)
Quarter: 2013Q1

REPORT INFORMATION
  Report Type: Spontaneous
  Country: US (occurrence: None)
  Receive Date: 20130329
  Receipt Date: 20130329
  Transmission Date: 20140127
  Serious: Yes (Hospitalization, Disabling)
  Sender: FDA-Public Use
  Company Number: None

PATIENT
  Sex: 0

DRUGS (1)
  1. AZITHROMYCIN [Suspect]
     Indication: LOCALISED INFECTION
     Dates: start: 201008

REACTIONS (4)
  - Palpitations [None]
  - Hypertension [None]
  - Atrial fibrillation [None]
  - Atrial flutter [None]
